FAERS Safety Report 5190512-8 (Version None)
Quarter: 2006Q4

REPORT INFORMATION
  Report Type: 
  Country: None (occurrence: None)
  Receive Date: 20061222
  Receipt Date: 20061213
  Transmission Date: 20070319
  Serious: Yes (Other)
  Sender: FDA-Public Use
  Company Number: IT-GLAXOSMITHKLINE-B0451274A

PATIENT
  Sex: Female

DRUGS (1)
  1. NELARABINE [Suspect]
     Route: 065

REACTIONS (4)
  - BLINDNESS UNILATERAL [None]
  - HAEMORRHAGIC DISORDER [None]
  - PAPILLOEDEMA [None]
  - VASCULITIS [None]
